FAERS Safety Report 9184544 (Version 1)
Quarter: 2012Q4

REPORT INFORMATION
  Report Type: 
  Country: BR (occurrence: BR)
  Receive Date: 20121101
  Receipt Date: 20121101
  Transmission Date: 20130627
  Serious: Yes (Other)
  Sender: FDA-Public Use
  Company Number: BR-PFIZER INC-2012270873

PATIENT
  Age: 55 Year
  Sex: Male
  Weight: 57 kg

DRUGS (5)
  1. EFEXOR XR [Suspect]
     Indication: BIPOLAR DEPRESSION
     Dosage: 1 capsule of 75 mg, 1x/day
     Route: 048
     Dates: start: 2008
  2. EFEXOR XR [Suspect]
     Dosage: 1 capsule of 150 mg, 1x/day
     Route: 048
  3. VENLAFAXINE HYDROCHLORIDE [Suspect]
     Dosage: UNK
     Dates: start: 2011
  4. CARBOLITHIUM [Concomitant]
     Dosage: UNK
     Dates: start: 2002
  5. DEPAKOTE [Concomitant]
     Dosage: UNK
     Dates: start: 2010

REACTIONS (2)
  - Neoplasm malignant [Not Recovered/Not Resolved]
  - Drug ineffective [Unknown]
